FAERS Safety Report 12784351 (Version 1)
Quarter: 2016Q3

REPORT INFORMATION
  Report Type: Spontaneous
  Country: CA (occurrence: CA)
  Receive Date: 20160927
  Receipt Date: 20160927
  Transmission Date: 20161109
  Serious: Yes (Other)
  Sender: FDA-Public Use
  Company Number: CA-BEH-2014044197

PATIENT
  Age: 45 Year
  Sex: Male
  Weight: 79 kg

DRUGS (8)
  1. PRIVIGEN [Suspect]
     Active Substance: HUMAN IMMUNOGLOBULIN G
     Dosage: STARTING SPEED 24, ENDING SPEED 288
     Route: 042
     Dates: start: 20140328, end: 20140329
  2. PRIVIGEN [Suspect]
     Active Substance: HUMAN IMMUNOGLOBULIN G
     Dosage: STARTING SPEED 24, ENDING SPEED 288
     Route: 042
     Dates: start: 20140328, end: 20140329
  3. PREDNISONE. [Concomitant]
     Active Substance: PREDNISONE
     Route: 048
     Dates: start: 20140328
  4. PRIVIGEN [Suspect]
     Active Substance: HUMAN IMMUNOGLOBULIN G
     Indication: IMMUNE THROMBOCYTOPENIC PURPURA
     Dosage: STARTING SPEED 24, ENDING SPEED 288
     Route: 042
     Dates: start: 20140328, end: 20140329
  5. PRIVIGEN [Suspect]
     Active Substance: HUMAN IMMUNOGLOBULIN G
     Dosage: STARTING SPEED 24, ENDING SPEED 288
     Route: 042
     Dates: start: 20140328, end: 20140329
  6. MEVACOR [Concomitant]
     Active Substance: LOVASTATIN
     Route: 048
     Dates: start: 20140328
  7. PRIVIGEN [Suspect]
     Active Substance: HUMAN IMMUNOGLOBULIN G
     Dosage: STARTING SPEED 24, ENDING SPEED 288
     Route: 042
     Dates: start: 20140328, end: 20140329
  8. PROSCAR [Concomitant]
     Active Substance: FINASTERIDE
     Route: 048
     Dates: start: 20140328

REACTIONS (3)
  - Haemoglobin decreased [Recovered/Resolved]
  - Haemolysis [Recovered/Resolved]
  - Platelet count decreased [Recovered/Resolved]

NARRATIVE: CASE EVENT DATE: 20140329
